FAERS Safety Report 13758002 (Version 1)
Quarter: 2017Q3

REPORT INFORMATION
  Report Type: Spontaneous
  Country: US (occurrence: US)
  Receive Date: 20170717
  Receipt Date: 20170717
  Transmission Date: 20171127
  Serious: No
  Sender: FDA-Public Use
  Company Number: US-ASTRAZENECA-2017SE72481

PATIENT
  Age: 84 Year
  Sex: Female
  Weight: 63.5 kg

DRUGS (7)
  1. FOSINOPRIL [Concomitant]
     Active Substance: FOSINOPRIL
     Indication: ILL-DEFINED DISORDER
     Route: 048
  2. JANUVIA [Concomitant]
     Active Substance: SITAGLIPTIN PHOSPHATE
     Indication: BLOOD GLUCOSE INCREASED
     Dosage: UNKNOWN
     Route: 048
  3. AMLODIPINE [Concomitant]
     Active Substance: AMLODIPINE BESYLATE
     Indication: RELAXATION THERAPY
     Route: 048
  4. NITROGLYCERIN. [Concomitant]
     Active Substance: NITROGLYCERIN
     Indication: STENT PLACEMENT
     Dosage: AS REQUIRED
     Route: 060
  5. CARVEDILOL. [Concomitant]
     Active Substance: CARVEDILOL
     Indication: HYPERTENSION
     Dosage: UNKNOWN
     Route: 048
  6. ISOSORBIDE. [Concomitant]
     Active Substance: ISOSORBIDE
  7. BRILINTA [Suspect]
     Active Substance: TICAGRELOR
     Indication: STENT PLACEMENT
     Route: 048
     Dates: start: 201602

REACTIONS (7)
  - Speech disorder [Not Recovered/Not Resolved]
  - Feeling abnormal [Not Recovered/Not Resolved]
  - Product use issue [Unknown]
  - Off label use [Unknown]
  - Pain [Unknown]
  - Thinking abnormal [Not Recovered/Not Resolved]
  - Dyspnoea [Not Recovered/Not Resolved]

NARRATIVE: CASE EVENT DATE: 2017
